FAERS Safety Report 9961180 (Version 1)
Quarter: 2014Q1

REPORT INFORMATION
  Report Type: Spontaneous
  Country: FR (occurrence: FR)
  Receive Date: 20140305
  Receipt Date: 20140305
  Transmission Date: 20141002
  Serious: Yes (Life-Threatening, Other)
  Sender: FDA-Public Use
  Company Number: FR-009507513-1402FRA013665

PATIENT
  Age: 74 Year
  Sex: Male

DRUGS (6)
  1. VELMETIA [Suspect]
     Indication: TYPE 2 DIABETES MELLITUS
     Dosage: UNK
     Route: 048
     Dates: end: 20131102
  2. LASILIX [Suspect]
     Indication: CARDIAC FAILURE
     Dosage: UNK
     Dates: start: 20131025, end: 20131102
  3. AMAREL [Concomitant]
  4. CRESTOR [Concomitant]
  5. PROPRANOLOL HYDROCHLORIDE [Concomitant]
  6. PREVISCAN [Concomitant]

REACTIONS (4)
  - Cardiac arrest [Recovered/Resolved]
  - Cardiac failure [Unknown]
  - Metabolic acidosis [Recovered/Resolved]
  - Renal failure acute [Recovered/Resolved]
